FAERS Safety Report 9074889 (Version 1)
Quarter: 2013Q1

REPORT INFORMATION
  Report Type: Report from Study
  Country: US (occurrence: US)
  Receive Date: 20130129
  Receipt Date: 20130129
  Transmission Date: 20140127
  Serious: Yes (Hospitalization, Other)
  Sender: FDA-Public Use
  Company Number: US-ABBOTT-13P-163-1039441-00

PATIENT
  Age: 49 Year
  Sex: Male

DRUGS (3)
  1. HUMIRA [Suspect]
     Indication: CROHN^S DISEASE
     Dates: start: 201210, end: 20130103
  2. PREDNISONE [Concomitant]
     Indication: CROHN^S DISEASE
     Dosage: 15MG DAILY
  3. LOMOTIL [Concomitant]
     Indication: DIARRHOEA
     Dosage: 1-2 DAILY AS NEEDED

REACTIONS (1)
  - Enterovesical fistula [Recovering/Resolving]
